FAERS Safety Report 24805504 (Version 1)
Quarter: 2025Q1

REPORT INFORMATION
  Report Type: Spontaneous
  Country: IN (occurrence: IN)
  Receive Date: 20250103
  Receipt Date: 20250103
  Transmission Date: 20250409
  Serious: Yes (Hospitalization)
  Sender: SANOFI AVENTIS
  Company Number: IN-SA-2025SA002887

PATIENT
  Age: 50 Year
  Sex: Male
  Weight: 46 kg

DRUGS (2)
  1. OXALIPLATIN [Suspect]
     Active Substance: OXALIPLATIN
     Indication: Paraesthesia
     Route: 042
     Dates: start: 20241223, end: 20241223
  2. OXALIPLATIN [Suspect]
     Active Substance: OXALIPLATIN
     Indication: Burning sensation
     Route: 042
     Dates: start: 20241223, end: 20241223

REACTIONS (3)
  - Hyperhidrosis [Unknown]
  - Ocular hyperaemia [Unknown]
  - Chills [Unknown]

NARRATIVE: CASE EVENT DATE: 20241223
